FAERS Safety Report 5805390-0 (Version None)
Quarter: 2008Q3

REPORT INFORMATION
  Report Type: 
  Country: None (occurrence: None)
  Receive Date: 20080710
  Receipt Date: 20080707
  Transmission Date: 20090109
  Serious: Yes (Other)
  Sender: FDA-Public Use
  Company Number: US-BRISTOL-MYERS SQUIBB COMPANY-14251276

PATIENT
  Age: 39 Year
  Sex: Male

DRUGS (10)
  1. WARFARIN SODIUM [Suspect]
     Dosage: 20MG INITIALLY REQUIRE;REDUCED TO 12.5MG/D AND THEN TO 17.5MG/DAY
     Route: 048
  2. DIDANOSINE [Interacting]
     Indication: ANTIRETROVIRAL THERAPY
  3. LAMIVUDINE [Interacting]
     Indication: ANTIRETROVIRAL THERAPY
  4. ZIDOVUDINE [Interacting]
     Indication: ANTIRETROVIRAL THERAPY
  5. NEVIRAPINE [Interacting]
     Indication: ANTIRETROVIRAL THERAPY
  6. TENOFOVIR [Interacting]
     Indication: ANTIRETROVIRAL THERAPY
  7. NELFINAVIR [Interacting]
     Indication: ANTIRETROVIRAL THERAPY
  8. TENOFOVIR DF + EMTRICITABINE [Interacting]
     Indication: ANTIRETROVIRAL THERAPY
     Dosage: 1 DOSAGE FORM = EMTRICIABINE 200MG+TENOFOVIR 300MG
  9. LOPINAVIR AND RITONAVIR [Interacting]
     Indication: ANTIRETROVIRAL THERAPY
     Dosage: 1 DOSAGE FORM = LOPINAVIR 400MG + RITONAVIR 100MG.
  10. ENOXAPARIN SODIUM [Concomitant]
     Route: 058

REACTIONS (2)
  - DRUG INTERACTION [None]
  - VIRAL LOAD INCREASED [None]
